FAERS Safety Report 7179058-5 (Version None)
Quarter: 2010Q4

REPORT INFORMATION
  Report Type: 
  Country: None (occurrence: None)
  Receive Date: 20101221
  Receipt Date: 20101214
  Transmission Date: 20110411
  Serious: Yes (Other)
  Sender: FDA-Public Use
  Company Number: GB-JNJFOC-20101201224

PATIENT
  Age: 59 Year
  Sex: Female

DRUGS (5)
  1. RISPERIDONE [Suspect]
     Indication: SCHIZOPHRENIA
     Route: 048
  2. RISPERIDONE [Suspect]
     Route: 048
  3. RISPERIDONE [Suspect]
     Route: 048
  4. OMEPRAZOLE [Interacting]
     Indication: DYSPEPSIA
     Route: 048
  5. INFLUENZA VIRUS VACCINE POLYVALENT [Suspect]
     Indication: ILL-DEFINED DISORDER
     Route: 065

REACTIONS (8)
  - ADVERSE DRUG REACTION [None]
  - DRUG INTERACTION [None]
  - DYSKINESIA [None]
  - EXTRAPYRAMIDAL DISORDER [None]
  - FATIGUE [None]
  - MUSCULOSKELETAL STIFFNESS [None]
  - RESTLESSNESS [None]
  - TREMOR [None]
